FAERS Safety Report 21200511 (Version 1)
Quarter: 2022Q3

REPORT INFORMATION
  Report Type: Spontaneous
  Country: US (occurrence: None)
  Receive Date: 20220810
  Receipt Date: 20220810
  Transmission Date: 20221027
  Serious: Yes (Hospitalization)
  Sender: FDA-Public Use
  Company Number: None

PATIENT
  Sex: Male

DRUGS (5)
  1. PERTZYE [Suspect]
     Active Substance: PANCRELIPASE AMYLASE\PANCRELIPASE LIPASE\PANCRELIPASE PROTEASE
     Indication: Cystic fibrosis
     Dosage: OTHER QUANTITY : 24000-86250 UNIT;?OTHER FREQUENCY : 6 TIMES DAY;?TAKE 3 CAPSULES (24000-86250 UNIT
     Route: 048
     Dates: start: 20190905
  2. ALBUTEROL INH PROAIR GEQ [Concomitant]
  3. FLOVENT HFA INH [Concomitant]
  4. HYPERSAL [Concomitant]
  5. PULMOSAL [Concomitant]

REACTIONS (1)
  - Pneumonia [None]
